FAERS Safety Report 7945761-X (Version None)
Quarter: 2011Q4

REPORT INFORMATION
  Report Type: 
  Country: None (occurrence: None)
  Receive Date: 20111129
  Receipt Date: 20101223
  Transmission Date: 20120403
  Serious: No
  Sender: FDA-Public Use
  Company Number: US-GLAXOSMITHKLINE-A0901432A

PATIENT
  Age: 67 Year
  Sex: Male

DRUGS (1)
  1. LANOXIN [Suspect]
     Indication: PRODUCT USED FOR UNKNOWN INDICATION
     Dosage: .25MG PER DAY
     Route: 048
     Dates: start: 20101220

REACTIONS (1)
  - VISION BLURRED [None]
